FAERS Safety Report 19093125 (Version 1)
Quarter: 2021Q2

REPORT INFORMATION
  Report Type: Spontaneous
  Country: US (occurrence: US)
  Receive Date: 20210405
  Receipt Date: 20210405
  Transmission Date: 20210717
  Serious: Yes (Death, Hospitalization, Other)
  Sender: FDA-Public Use
  Company Number: US-BRISTOL-MYERS SQUIBB COMPANY-BMS-2021-032302

PATIENT
  Age: 69 Year
  Sex: Female

DRUGS (2)
  1. ALTEPLASE. [Suspect]
     Active Substance: ALTEPLASE
     Indication: PERIPHERAL ARTERY THROMBOSIS
     Dosage: 0.01 MILLIGRAM/KILOGRAM
     Route: 042
  2. APIXABAN [Suspect]
     Active Substance: APIXABAN
     Indication: PERIPHERAL ARTERY THROMBOSIS
     Dosage: 5 MILLIGRAM, BID
     Route: 065

REACTIONS (4)
  - Intraventricular haemorrhage [Fatal]
  - Cerebral haemorrhage [Fatal]
  - Subarachnoid haemorrhage [Unknown]
  - Intentional product use issue [Unknown]
